FAERS Safety Report 25289892 (Version 2)
Quarter: 2025Q3

REPORT INFORMATION
  Report Type: Report from Study
  Country: CL (occurrence: CL)
  Receive Date: 20250509
  Receipt Date: 20250929
  Transmission Date: 20251020
  Serious: Yes (Hospitalization, Other)
  Sender: NOVARTIS
  Company Number: CL-002147023-NVSC2025CL074339

PATIENT
  Age: 70 Year
  Sex: Female

DRUGS (3)
  1. COSENTYX [Suspect]
     Active Substance: SECUKINUMAB
     Indication: Psoriatic arthropathy
     Dosage: 300 MG, QMO
     Route: 058
     Dates: start: 20240807
  2. COSENTYX [Suspect]
     Active Substance: SECUKINUMAB
     Dosage: 300 MG, QMO
     Route: 065
     Dates: start: 20250504
  3. COSENTYX [Suspect]
     Active Substance: SECUKINUMAB
     Dosage: 300 MG, QMO
     Route: 065
     Dates: start: 20250904

REACTIONS (6)
  - Pneumonia [Unknown]
  - Psoriatic arthropathy [Unknown]
  - Nasopharyngitis [Recovered/Resolved]
  - Psoriasis [Unknown]
  - Skin exfoliation [Unknown]
  - Medication error [Unknown]

NARRATIVE: CASE EVENT DATE: 20250501
